FAERS Safety Report 4838308-8 (Version None)
Quarter: 2005Q4

REPORT INFORMATION
  Report Type: 
  Country: None (occurrence: None)
  Receive Date: 20051123
  Receipt Date: 20051110
  Transmission Date: 20060501
  Serious: Yes (Hospitalization)
  Sender: FDA-Public Use
  Company Number: 12874

PATIENT
  Age: 41 Year
  Sex: Female

DRUGS (7)
  1. PAMIDRONATE DISODIUM [Suspect]
     Indication: METASTASES TO BONE
     Dosage: 90 MG IV
     Route: 042
     Dates: start: 20050929, end: 20050929
  2. NEXIUM [Concomitant]
  3. PERFALGAN [Concomitant]
  4. SOLU-MEDROL [Concomitant]
  5. NEURONTIN [Concomitant]
  6. ZECLAR [Concomitant]
  7. DIFFU K [Concomitant]

REACTIONS (1)
  - SHOCK [None]
